FAERS Safety Report 9819219 (Version 1)
Quarter: 2014Q1

REPORT INFORMATION
  Report Type: Spontaneous
  Country: US (occurrence: US)
  Receive Date: 20140115
  Receipt Date: 20140115
  Transmission Date: 20141002
  Serious: Yes (Other)
  Sender: FDA-Public Use
  Company Number: US-AMGEN-USASP2014002031

PATIENT
  Age: 59 Year
  Sex: Female

DRUGS (2)
  1. ENBREL [Suspect]
     Indication: RHEUMATOID ARTHRITIS
     Dosage: 50 MG, QWK
     Route: 065
     Dates: start: 20120905
  2. MTX                                /00113801/ [Concomitant]
     Dosage: 5 PILLS WEEKLY

REACTIONS (4)
  - Ankle fracture [Not Recovered/Not Resolved]
  - Accident [Unknown]
  - Influenza [Recovered/Resolved]
  - Injection site pain [Not Recovered/Not Resolved]
